FAERS Safety Report 10233883 (Version 3)
Quarter: 2014Q3

REPORT INFORMATION
  Report Type: Report from Study
  Country: BR (occurrence: BR)
  Receive Date: 20140612
  Receipt Date: 20140908
  Transmission Date: 20150326
  Serious: Yes (Hospitalization, Other)
  Sender: FDA-Public Use
  Company Number: PHHY2014BR070214

PATIENT
  Age: 74 Year
  Sex: Female
  Weight: 71 kg

DRUGS (15)
  1. CARVEDILOL. [Suspect]
     Active Substance: CARVEDILOL
     Dosage: 2 TABLETS (25 MG) DAILY
     Route: 048
     Dates: start: 201404
  2. SIMVASTATIN. [Suspect]
     Active Substance: SIMVASTATIN
     Indication: BLOOD CHOLESTEROL ABNORMAL
     Dosage: 1 TABLET (40 MG) DAILY
     Route: 048
     Dates: start: 201404
  3. RIVOTRIL [Suspect]
     Active Substance: CLONAZEPAM
     Indication: SLEEP DISORDER
     Dosage: 3 DRP (2.5) DAILY
     Route: 048
  4. MONOPRIL [Suspect]
     Active Substance: FOSINOPRIL SODIUM
     Dosage: UNK UKN, UNK
  5. APRESOLIN [Suspect]
     Active Substance: HYDRALAZINE HYDROCHLORIDE
     Indication: HYPERTENSION
     Dosage: 3 TABLETS (50 MG) DAILY
     Route: 048
     Dates: start: 201404
  6. METFORMIN [Suspect]
     Active Substance: METFORMIN HYDROCHLORIDE
     Indication: DIABETES MELLITUS
     Dosage: 2 TABLETS (500 MG) DAILY
     Route: 048
     Dates: start: 1999
  7. HYDRALAZINE [Suspect]
     Active Substance: HYDRALAZINE HYDROCHLORIDE
     Dosage: UNK UKN, UNK
  8. PANTOPRAZOLE [Suspect]
     Active Substance: PANTOPRAZOLE SODIUM
     Indication: GASTROINTESTINAL DISORDER
     Dosage: 1 TABLET (20 MG) DAILY
     Route: 048
     Dates: start: 201404
  9. FLUOXETINE [Suspect]
     Active Substance: FLUOXETINE\FLUOXETINE HYDROCHLORIDE
     Indication: FEELING ABNORMAL
     Dosage: 20 DRP, DAILY
     Route: 048
     Dates: start: 201406
  10. ACETYLSALICYLIC ACID [Suspect]
     Active Substance: ASPIRIN
     Indication: ANTICOAGULANT THERAPY
     Dosage: 1 TABLET, DAILY
     Route: 048
     Dates: start: 1999
  11. DAFLON (DIOSMIN) [Suspect]
     Active Substance: DIOSMIN
     Indication: OSTEOARTHRITIS
     Dosage: 2 TABLETS (500 MG) DAILY
     Route: 048
     Dates: start: 201404
  12. EXFORGE HCT [Suspect]
     Active Substance: AMLODIPINE BESYLATE\HYDROCHLOROTHIAZIDE\VALSARTAN
     Indication: HYPERTENSION
     Dosage: 2 TABLETS (160/5/12.5 MG) DAILY
     Route: 048
     Dates: start: 201404, end: 201408
  13. SPIRONOLACTONE. [Suspect]
     Active Substance: SPIRONOLACTONE
     Dosage: 1 TABLET (25 MG) DAILY
     Route: 048
     Dates: start: 201404
  14. ADDERA D3 [Suspect]
     Active Substance: CHOLECALCIFEROL
     Indication: VITAMIN D
     Dosage: 12 DRP (10 MG) DAILY
     Route: 048
     Dates: start: 201404
  15. TRYPTANOL//AMITRIPTYLINE HYDROCHLORIDE [Suspect]
     Active Substance: AMITRIPTYLINE HYDROCHLORIDE
     Indication: CONVULSION PROPHYLAXIS
     Dosage: 1 TABLET (25 MG) DAILY
     Route: 048
     Dates: start: 1999

REACTIONS (12)
  - Red blood cell count decreased [Unknown]
  - Infarction [Unknown]
  - Haemoglobin decreased [Unknown]
  - Somnolence [Recovering/Resolving]
  - Glycosylated haemoglobin increased [Unknown]
  - Blood pressure decreased [Unknown]
  - Back pain [Unknown]
  - Angina pectoris [Unknown]
  - Ageusia [Recovering/Resolving]
  - Haematocrit decreased [Unknown]
  - Decreased appetite [Recovering/Resolving]
  - Weight decreased [Recovering/Resolving]

NARRATIVE: CASE EVENT DATE: 201404
